FAERS Safety Report 5454002-7 (Version None)
Quarter: 2007Q3

REPORT INFORMATION
  Report Type: 
  Country: None (occurrence: None)
  Receive Date: 20070917
  Receipt Date: 20070906
  Transmission Date: 20080115
  Serious: Yes (Life-Threatening)
  Sender: FDA-Public Use
  Company Number: JP-ROCHE-516256

PATIENT
  Age: 63 Year
  Sex: Female

DRUGS (4)
  1. PEG-INTERFERON A-2A (RO 25-8310) [Suspect]
     Route: 058
     Dates: start: 20040525, end: 20040525
  2. PEG-INTERFERON A-2A (RO 25-8310) [Suspect]
     Dosage: DOSE DECREASED.
     Route: 058
     Dates: start: 20040601
  3. NORVASC [Concomitant]
     Route: 048
     Dates: end: 20050727
  4. NEO-MINOPHAGEN C [Concomitant]
     Dates: start: 19991216

REACTIONS (1)
  - HEPATIC NEOPLASM MALIGNANT [None]
